FAERS Safety Report 24287802 (Version 1)
Quarter: 2024Q3

REPORT INFORMATION
  Report Type: Report from Study
  Country: US (occurrence: US)
  Receive Date: 20240905
  Receipt Date: 20240905
  Transmission Date: 20241017
  Serious: Yes (Hospitalization)
  Sender: EISAI
  Company Number: US-Eisai-EC-2024-173484

PATIENT
  Age: 82 Year
  Sex: Male

DRUGS (14)
  1. LENVATINIB [Suspect]
     Active Substance: LENVATINIB
     Indication: Renal cell carcinoma
     Route: 048
     Dates: start: 20240718, end: 20240729
  2. PEMBROLIZUMAB [Suspect]
     Active Substance: PEMBROLIZUMAB
     Indication: Renal cell carcinoma
     Dosage: FREQUENCY UNKNOWN
     Route: 042
     Dates: start: 20240718, end: 20240718
  3. ZOFRAN [Concomitant]
     Active Substance: ONDANSETRON HYDROCHLORIDE
  4. COMPAZINE [Concomitant]
     Active Substance: PROCHLORPERAZINE MALEATE
  5. RYTARY [Concomitant]
     Active Substance: CARBIDOPA\LEVODOPA
  6. VITAMIN D3 [Concomitant]
     Active Substance: CHOLECALCIFEROL
  7. DOCONEXENT [Concomitant]
     Active Substance: DOCONEXENT
  8. PROAMATINE [Concomitant]
     Active Substance: MIDODRINE HYDROCHLORIDE
  9. TYLENOL [Concomitant]
     Active Substance: ACETAMINOPHEN
  10. KLONOPIN [Concomitant]
     Active Substance: CLONAZEPAM
  11. PROSCAR [Concomitant]
     Active Substance: FINASTERIDE
  12. IMODIUM [Concomitant]
     Active Substance: LOPERAMIDE HYDROCHLORIDE
  13. MYRBETRIQ [Concomitant]
     Active Substance: MIRABEGRON
     Dates: start: 20240718, end: 20240718
  14. PRILOSEC [Concomitant]
     Active Substance: OMEPRAZOLE MAGNESIUM

REACTIONS (3)
  - Acute kidney injury [Unknown]
  - Pleural effusion [Unknown]
  - Dyspnoea [Unknown]

NARRATIVE: CASE EVENT DATE: 20240820
